FAERS Safety Report 21818900 (Version 1)
Quarter: 2023Q1

REPORT INFORMATION
  Report Type: Report from Study
  Country: EG (occurrence: EG)
  Receive Date: 20230104
  Receipt Date: 20230104
  Transmission Date: 20230418
  Serious: Yes (Death)
  Sender: FDA-Public Use
  Company Number: EG-002147023-NVSC2021EG200434

PATIENT
  Sex: Female

DRUGS (1)
  1. PIQRAY [Suspect]
     Active Substance: ALPELISIB
     Indication: Breast cancer
     Dosage: 300 MG, QD (TWO TABLET ONCE DAILY)
     Route: 048
     Dates: start: 202108

REACTIONS (6)
  - Malignant neoplasm progression [Fatal]
  - Cerebral haemorrhage [Fatal]
  - Adverse event [Unknown]
  - Hypersensitivity [Unknown]
  - Diarrhoea [Unknown]
  - Vomiting [Unknown]
